FAERS Safety Report 8096502-X (Version None)
Quarter: 2012Q1

REPORT INFORMATION
  Report Type: 
  Country: None (occurrence: None)
  Receive Date: 20120129
  Receipt Date: 20111206
  Transmission Date: 20120608
  Serious: Yes (Other)
  Sender: FDA-Public Use
  Company Number: US-ABBOTT-11P-163-0881084-00

PATIENT
  Sex: Female
  Weight: 74.91 kg

DRUGS (4)
  1. UNKNOWN VITAMINS [Concomitant]
     Indication: ROUTINE HEALTH MAINTENANCE
  2. HUMIRA [Suspect]
     Indication: RHEUMATOID ARTHRITIS
     Route: 058
     Dates: start: 20030101
  3. UNKNOWN MEDICATIONS [Concomitant]
     Indication: GASTRIC DISORDER
  4. UNKNOWN MEDICATIONS [Concomitant]
     Indication: PROPHYLAXIS

REACTIONS (4)
  - FOOT OPERATION [None]
  - PAIN IN EXTREMITY [None]
  - JOINT SWELLING [None]
  - ARTHRALGIA [None]
